FAERS Safety Report 6470314-2 (Version None)
Quarter: 2009Q4

REPORT INFORMATION
  Report Type: 
  Country: None (occurrence: None)
  Receive Date: 20091203
  Receipt Date: 20091118
  Transmission Date: 20100525
  Serious: Yes (Death)
  Sender: FDA-Public Use
  Company Number: NL-MERCK-0912USA00322

PATIENT

DRUGS (1)
  1. DECADRON [Suspect]
     Indication: MENINGITIS PNEUMOCOCCAL
     Route: 048

REACTIONS (1)
  - CEREBRAL ARTERY THROMBOSIS [None]
